FAERS Safety Report 12258716 (Version 1)
Quarter: 2016Q2

REPORT INFORMATION
  Report Type: Spontaneous
  Country: US (occurrence: US)
  Receive Date: 20160412
  Receipt Date: 20160412
  Transmission Date: 20160815
  Serious: No
  Sender: FDA-Public Use
  Company Number: US-SA-2015SA057032

PATIENT
  Sex: Female

DRUGS (1)
  1. ALLEGRA [Suspect]
     Active Substance: FEXOFENADINE HYDROCHLORIDE
     Indication: MULTIPLE ALLERGIES
     Dosage: START DATE: 18-APRIL
     Route: 048
     Dates: end: 20150426

REACTIONS (8)
  - Wrong technique in product usage process [Unknown]
  - Intestinal transit time decreased [Unknown]
  - Malaise [Unknown]
  - Nausea [Unknown]
  - Cognitive disorder [Unknown]
  - Weight decreased [Unknown]
  - Weight increased [Unknown]
  - Amnesia [Unknown]
